FAERS Safety Report 6231244-4 (Version None)
Quarter: 2009Q2

REPORT INFORMATION
  Report Type: 
  Country: None (occurrence: None)
  Receive Date: 20090616
  Receipt Date: 20090609
  Transmission Date: 20091009
  Serious: Yes (Disabling, Other)
  Sender: FDA-Public Use
  Company Number: US-ELI_LILLY_AND_COMPANY-US200906002283

PATIENT
  Age: 85 Year
  Sex: Female

DRUGS (1)
  1. EVISTA [Suspect]
     Dosage: UNK, UNKNOWN
     Route: 065

REACTIONS (5)
  - ABASIA [None]
  - COLON CANCER [None]
  - DECREASED ACTIVITY [None]
  - DEEP VEIN THROMBOSIS [None]
  - FEELING ABNORMAL [None]
